FAERS Safety Report 8056380-1 (Version None)
Quarter: 2012Q1

REPORT INFORMATION
  Report Type: 
  Country: None (occurrence: None)
  Receive Date: 20120119
  Receipt Date: 20120114
  Transmission Date: 20120608
  Serious: Yes (Other)
  Sender: FDA-Public Use
  Company Number: CN-PFIZER INC-2012012438

PATIENT
  Age: 60 Year
  Sex: Male

DRUGS (1)
  1. SOLU-MEDROL [Suspect]
     Dosage: 250 MG, 2X/DAY
     Dates: start: 20110101

REACTIONS (1)
  - GASTROINTESTINAL HAEMORRHAGE [None]
